FAERS Safety Report 5402861-6 (Version None)
Quarter: 2007Q3

REPORT INFORMATION
  Report Type: 
  Country: None (occurrence: None)
  Receive Date: 20070801
  Receipt Date: 20070723
  Transmission Date: 20080115
  Serious: Yes (Hospitalization, Other)
  Sender: FDA-Public Use
  Company Number: US-ABBOTT-06P-163-0339966-00

PATIENT
  Sex: Female
  Weight: 74.91 kg

DRUGS (7)
  1. HUMIRA [Suspect]
     Indication: RHEUMATOID ARTHRITIS
     Route: 058
     Dates: end: 20060601
  2. HUMIRA [Suspect]
     Dates: start: 20060810
  3. HUMIRA [Suspect]
     Route: 058
     Dates: start: 20050901
  4. GABAPENTIN [Concomitant]
     Indication: NERVE INJURY
     Route: 048
     Dates: start: 20050101
  5. DOCUSATE SODIUM [Concomitant]
     Indication: CONSTIPATION
     Route: 048
  6. MORPHINE [Concomitant]
     Indication: ARTHRALGIA
     Route: 048
  7. VICODIN [Concomitant]
     Indication: ARTHRALGIA
     Route: 048

REACTIONS (2)
  - LUMBAR SPINAL STENOSIS [None]
  - PROCEDURAL PAIN [None]
